FAERS Safety Report 9951818 (Version 1)
Quarter: 2014Q1

REPORT INFORMATION
  Report Type: Spontaneous
  Country: US (occurrence: US)
  Receive Date: 20140304
  Receipt Date: 20140304
  Transmission Date: 20141002
  Serious: No
  Sender: FDA-Public Use
  Company Number: US-B.I. PHARMACEUTICALS,INC./RIDGEFIELD-2014-BI-07654BP

PATIENT
  Age: 65 Year
  Sex: Male
  Weight: 127 kg

DRUGS (3)
  1. COMBIVENT [Suspect]
     Indication: ASTHMA
     Dosage: STRENGTH: 20 MCG / 100 MCG
     Route: 055
     Dates: start: 2013
  2. ADVAIR [Concomitant]
     Indication: ASTHMA
     Route: 055
  3. NEBULIZER [Concomitant]
     Indication: ASTHMA
     Route: 055

REACTIONS (6)
  - Dyspnoea exertional [Not Recovered/Not Resolved]
  - Asthma [Recovered/Resolved]
  - Asthma [Recovered/Resolved]
  - Sinusitis [Recovered/Resolved]
  - Inappropriate schedule of drug administration [Not Recovered/Not Resolved]
  - Off label use [Unknown]
